FAERS Safety Report 23835363 (Version 1)
Quarter: 2024Q2

REPORT INFORMATION
  Report Type: Spontaneous
  Country: DE (occurrence: DE)
  Receive Date: 20240509
  Receipt Date: 20240509
  Transmission Date: 20240715
  Serious: Yes (Hospitalization, Other)
  Sender: FDA-Public Use
  Company Number: DE-EMBRYOTOX-202211242

PATIENT
  Age: 1 Day
  Sex: Male
  Weight: 3.79 kg

DRUGS (6)
  1. VENLAFAXINE [Suspect]
     Active Substance: VENLAFAXINE HYDROCHLORIDE
     Indication: Bipolar disorder
     Dosage: 75 MILLIGRAM, DAILY
     Route: 064
     Dates: start: 20220630, end: 20230328
  2. QUETIAPINE [Suspect]
     Active Substance: QUETIAPINE
     Indication: Bipolar disorder
     Dosage: 150 [MG/D ]/ 150 MG/D, AROUND GW 33 REDUCED TO 100 MG/D
     Route: 064
     Dates: start: 20220630, end: 20230328
  3. LITHIUM [Suspect]
     Active Substance: LITHIUM
     Indication: Bipolar disorder
     Dosage: 400 [MG/D ]/ SINCE 2010, 200-0-200 MG/D 2 SEPARATED DOSES
     Route: 064
     Dates: start: 20220630, end: 20230328
  4. DALTEPARIN SODIUM [Concomitant]
     Active Substance: DALTEPARIN SODIUM
     Indication: Thrombosis prophylaxis
     Dosage: 5000 INTERNATIONAL UNIT, DAILY
     Route: 064
  5. ASPIRIN [Concomitant]
     Active Substance: ASPIRIN
     Indication: Prophylaxis
     Dosage: 150 MILLIGRAM, DAILY
     Route: 064
  6. LEVOTHYROXINE SODIUM [Concomitant]
     Active Substance: LEVOTHYROXINE SODIUM
     Indication: Hypothyroidism
     Dosage: 100 MCG, DAILY
     Route: 064
     Dates: start: 20220630, end: 20230328

REACTIONS (7)
  - Atrial septal defect [Unknown]
  - Foetal exposure during pregnancy [Unknown]
  - Opisthotonus [Recovering/Resolving]
  - Oxygen saturation decreased [Recovered/Resolved]
  - Myoclonus [Recovering/Resolving]
  - Agitation neonatal [Recovering/Resolving]
  - Bradycardia neonatal [Recovered/Resolved]

NARRATIVE: CASE EVENT DATE: 20230301
